FAERS Safety Report 9424497 (Version 8)
Quarter: 2013Q4

REPORT INFORMATION
  Report Type: Report from Study
  Country: CO (occurrence: CO)
  Receive Date: 20130729
  Receipt Date: 20131231
  Transmission Date: 20140711
  Serious: Yes (Other)
  Sender: FDA-Public Use
  Company Number: CO-ROCHE-1251879

PATIENT
  Age: 50 Year
  Sex: Female
  Weight: 96 kg

DRUGS (4)
  1. VISMODEGIB [Suspect]
     Indication: BASAL CELL CARCINOMA
     Dosage: MOST RECENT DOSE PRIOR TO VISMODEGIB INTERRUPTION:18/JUL/2013
     Route: 048
     Dates: start: 20130508, end: 20130718
  2. VISMODEGIB [Suspect]
     Indication: BASAL CELL CARCINOMA
     Route: 048
     Dates: start: 20130823
  3. ACETAMINOPHEN [Concomitant]
     Indication: INFLUENZA
     Route: 065
     Dates: start: 20130729, end: 20130729
  4. ACETAMINOPHEN [Concomitant]
     Dosage: 6
     Route: 065
     Dates: start: 20131007, end: 20131009

REACTIONS (1)
  - Hepatic enzyme increased [Recovered/Resolved]
